FAERS Safety Report 8435283-4 (Version None)
Quarter: 2012Q2

REPORT INFORMATION
  Report Type: 
  Country: None (occurrence: None)
  Receive Date: 20120614
  Receipt Date: 20120611
  Transmission Date: 20120825
  Serious: Yes (Death, Other)
  Sender: FDA-Public Use
  Company Number: US-PFIZER INC-2012141310

PATIENT
  Sex: Female

DRUGS (1)
  1. RAPAMUNE [Suspect]
     Indication: LIVER DISORDER
     Dosage: 2 MG, DAILY
     Dates: start: 20120228

REACTIONS (3)
  - DISEASE PROGRESSION [None]
  - LIVER TRANSPLANT REJECTION [None]
  - LIVER DISORDER [None]
